FAERS Safety Report 12727366 (Version 2)
Quarter: 2016Q3

REPORT INFORMATION
  Report Type: Spontaneous
  Country: AT (occurrence: AT)
  Receive Date: 20160909
  Receipt Date: 20160923
  Transmission Date: 20161109
  Serious: Yes (Hospitalization)
  Sender: FDA-Public Use
  Company Number: AT-ABBVIE-16K-009-1719892-00

PATIENT
  Sex: Male
  Weight: 75 kg

DRUGS (1)
  1. DUODOPA [Suspect]
     Active Substance: CARBIDOPA\LEVODOPA
     Indication: PARKINSON^S DISEASE
     Dosage: MD: 8 ML, ED: 5 ML, CR: 5ML/H FOR 15 HOURS
     Route: 050
     Dates: start: 20080215

REACTIONS (8)
  - Full blood count decreased [Unknown]
  - Pleural effusion [Unknown]
  - Blood sodium decreased [Unknown]
  - Device issue [Unknown]
  - Atelectasis [Unknown]
  - Lung infiltration [Unknown]
  - Pneumonia [Unknown]
  - Blood potassium increased [Unknown]

NARRATIVE: CASE EVENT DATE: 2016
